FAERS Safety Report 8612916-0 (Version None)
Quarter: 2012Q3

REPORT INFORMATION
  Report Type: 
  Country: None (occurrence: None)
  Receive Date: 20120822
  Receipt Date: 20111216
  Transmission Date: 20120928
  Serious: No
  Sender: FDA-Public Use
  Company Number: US-ALLERGAN-1116540US

PATIENT
  Age: 77 Year
  Sex: Male

DRUGS (3)
  1. METFORMIN [Concomitant]
     Indication: DIABETES MELLITUS
  2. ASPIRIN [Concomitant]
     Indication: PRODUCT USED FOR UNKNOWN INDICATION
     Dosage: 81 MG, QD
     Route: 048
     Dates: start: 20010101
  3. SANCTURA XR [Suspect]
     Indication: POLLAKIURIA
     Dosage: 60 MG, QAM
     Route: 048
     Dates: start: 20111202, end: 20111216

REACTIONS (3)
  - MIDDLE INSOMNIA [None]
  - MUSCLE SPASMS [None]
  - ACTIVITIES OF DAILY LIVING IMPAIRED [None]
